FAERS Safety Report 25324253 (Version 1)
Quarter: 2025Q2

REPORT INFORMATION
  Report Type: Spontaneous
  Country: RU (occurrence: RU)
  Receive Date: 20250516
  Receipt Date: 20250516
  Transmission Date: 20250716
  Serious: Yes (Other)
  Sender: ORGANON
  Company Number: RU-009507513-1807RUS012810

PATIENT

DRUGS (2)
  1. NASONEX [Suspect]
     Active Substance: MOMETASONE FUROATE
  2. FLUTICASONE FUROATE [Suspect]
     Active Substance: FLUTICASONE FUROATE

REACTIONS (3)
  - Bacterial infection [Unknown]
  - Viral infection [Unknown]
  - Cataract [Unknown]
